FAERS Safety Report 10678510 (Version 1)
Quarter: 2014Q4

REPORT INFORMATION
  Report Type: Spontaneous
  Country: JP (occurrence: JP)
  Receive Date: 20141229
  Receipt Date: 20141229
  Transmission Date: 20150529
  Serious: Yes (Hospitalization, Other)
  Sender: FDA-Public Use
  Company Number: JP-PFIZER INC-2014357774

PATIENT
  Age: 89 Year
  Sex: Female
  Weight: 44 kg

DRUGS (10)
  1. RECALBON [Concomitant]
     Active Substance: MINODRONIC ACID
     Dosage: UNK
  2. NU LOTAN [Concomitant]
     Active Substance: LOSARTAN
     Dosage: UNK
  3. EDIROL [Concomitant]
     Active Substance: ELDECALCITOL
     Dosage: UNK
  4. MUCOSTA [Concomitant]
     Active Substance: REBAMIPIDE
     Dosage: UNK
  5. MAGMITT [Concomitant]
     Active Substance: MAGNESIUM OXIDE
     Dosage: UNK
  6. MEVALOTIN [Concomitant]
     Active Substance: PRAVASTATIN SODIUM
     Dosage: UNK
  7. VOLTAREN [Suspect]
     Active Substance: DICLOFENAC SODIUM
     Indication: SEDATION
     Dosage: 25 MG, 1X/DAY
     Route: 048
     Dates: start: 201405, end: 201411
  8. PROTECADIN [Concomitant]
     Active Substance: LAFUTIDINE
     Dosage: UNK
  9. CELECOX [Suspect]
     Active Substance: CELECOXIB
     Indication: SEDATION
     Dosage: 100 MG, 2X/DAY
     Route: 048
     Dates: start: 201405, end: 201411
  10. NAUZELIN [Concomitant]
     Active Substance: DOMPERIDONE
     Dosage: UNK

REACTIONS (6)
  - Nephrogenic diabetes insipidus [Unknown]
  - Product use issue [Unknown]
  - Altered state of consciousness [Unknown]
  - Acute kidney injury [Recovering/Resolving]
  - Hypermagnesaemia [Unknown]
  - Muscle abscess [Unknown]

NARRATIVE: CASE EVENT DATE: 201405
